FAERS Safety Report 11426547 (Version 1)
Quarter: 2015Q3

REPORT INFORMATION
  Report Type: Spontaneous
  Country: US (occurrence: US)
  Receive Date: 20150827
  Receipt Date: 20150827
  Transmission Date: 20151125
  Serious: Yes (Life-Threatening, Hospitalization, Other)
  Sender: FDA-Public Use
  Company Number: US-ROXANE LABORATORIES, INC.-2015-RO-01378RO

PATIENT
  Age: 31 Year
  Sex: Male

DRUGS (1)
  1. MEFLOQUINE [Suspect]
     Active Substance: MEFLOQUINE
     Indication: MALARIA PROPHYLAXIS
     Route: 048

REACTIONS (8)
  - Suicidal ideation [Unknown]
  - Depersonalisation [Unknown]
  - Alopecia [Unknown]
  - Anxiety [Unknown]
  - Paranoia [Unknown]
  - Decreased appetite [Unknown]
  - Major depression [Unknown]
  - Libido decreased [Unknown]

NARRATIVE: CASE EVENT DATE: 2012
